FAERS Safety Report 9499975 (Version 1)
Quarter: 2013Q3

REPORT INFORMATION
  Report Type: Spontaneous
  Country: US (occurrence: None)
  Receive Date: 20130904
  Receipt Date: 20130904
  Transmission Date: 20140515
  Serious: Yes (Hospitalization)
  Sender: FDA-Public Use
  Company Number: None

PATIENT
  Age: 35 Year
  Sex: Female
  Weight: 76.2 kg

DRUGS (2)
  1. PARAGARD [Suspect]
     Indication: CONTRACEPTION
     Dates: start: 20070510, end: 20130903
  2. PARAGARD [Suspect]
     Dates: start: 20070510, end: 20130903

REACTIONS (2)
  - Device breakage [None]
  - Complication of device removal [None]
